FAERS Safety Report 15703760 (Version 4)
Quarter: 2020Q2

REPORT INFORMATION
  Report Type: Report from Study
  Country: CA (occurrence: CA)
  Receive Date: 20181210
  Receipt Date: 20200518
  Transmission Date: 20200713
  Serious: Yes (Other)
  Sender: FDA-Public Use
  Company Number: CA-GLAXOSMITHKLINE-CA2018GSK194257

PATIENT
  Sex: Female

DRUGS (4)
  1. PREDNISONE. [Suspect]
     Active Substance: PREDNISONE
     Indication: PRODUCT USED FOR UNKNOWN INDICATION
     Dosage: UNK
     Dates: start: 2019
  2. VENTOLIN [Suspect]
     Active Substance: ALBUTEROL SULFATE
     Indication: PRODUCT USED FOR UNKNOWN INDICATION
     Dosage: UNK
  3. MEPOLIZUMAB [Suspect]
     Active Substance: MEPOLIZUMAB
     Indication: ASTHMA
     Dosage: 100 MG, Z, MONTHLY
     Route: 042
     Dates: start: 20190517
  4. MEPOLIZUMAB [Suspect]
     Active Substance: MEPOLIZUMAB
     Dosage: 100 MG, Z, MONTHLY
     Route: 042

REACTIONS (14)
  - Sinus polyp [Unknown]
  - Dyspnoea [Not Recovered/Not Resolved]
  - Multiple allergies [Unknown]
  - Ageusia [Unknown]
  - Eosinophilic granulomatosis with polyangiitis [Unknown]
  - Nasopharyngitis [Unknown]
  - Sinus disorder [Not Recovered/Not Resolved]
  - Productive cough [Not Recovered/Not Resolved]
  - Middle ear effusion [Unknown]
  - Pulmonary mass [Unknown]
  - Asthma [Unknown]
  - Chronic sinusitis [Unknown]
  - Hypoacusis [Not Recovered/Not Resolved]
  - Ill-defined disorder [Unknown]
